FAERS Safety Report 22397985 (Version 1)
Quarter: 2023Q2

REPORT INFORMATION
  Report Type: Spontaneous
  Country: JP (occurrence: None)
  Receive Date: 20230602
  Receipt Date: 20230602
  Transmission Date: 20230721
  Serious: Yes (Life-Threatening, Other)
  Sender: FDA-Public Use
  Company Number: JP-Merck KGaA-7030583

PATIENT
  Age: 92 Year
  Sex: Male
  Weight: 42 kg

DRUGS (7)
  1. METGLUCO [Suspect]
     Active Substance: METFORMIN HYDROCHLORIDE
     Indication: Diabetes mellitus
     Route: 048
     Dates: start: 20101002
  2. METGLUCO [Suspect]
     Active Substance: METFORMIN HYDROCHLORIDE
     Route: 048
     Dates: start: 20101016, end: 20101030
  3. METGLUCO [Suspect]
     Active Substance: METFORMIN HYDROCHLORIDE
     Route: 048
     Dates: start: 20101030, end: 20101201
  4. GLYBURIDE [Concomitant]
     Active Substance: GLYBURIDE
     Indication: Product used for unknown indication
     Route: 048
  5. BUFORMIN [Concomitant]
     Active Substance: BUFORMIN
     Indication: Diabetes mellitus
     Route: 048
     Dates: end: 20101016
  6. REPLAS 3 [Concomitant]
     Indication: Product used for unknown indication
     Dates: start: 20101130, end: 20101130
  7. METHYLMETHIONINE SULFONIUM CHLORIDE [Concomitant]
     Active Substance: METHYLMETHIONINE SULFONIUM CHLORIDE
     Indication: Product used for unknown indication
     Dates: start: 20101130, end: 20101130

REACTIONS (3)
  - Lactic acidosis [Recovered/Resolved]
  - Blood creatinine increased [Unknown]
  - Off label use [Unknown]

NARRATIVE: CASE EVENT DATE: 20101201
